FAERS Safety Report 4950836-3 (Version None)
Quarter: 2006Q1

REPORT INFORMATION
  Report Type: 
  Country: None (occurrence: None)
  Receive Date: 20060321
  Receipt Date: 20060321
  Transmission Date: 20060701
  Serious: Yes (Other)
  Sender: FDA-Public Use
  Company Number: None

PATIENT
  Age: 68 Year
  Sex: Male
  Weight: 67.1 kg

DRUGS (5)
  1. SIMVASTATIN [Suspect]
  2. DICLOFENAC NA [Concomitant]
  3. BUPROPION HCL [Concomitant]
  4. HYDROXYZINE PAMOATE [Concomitant]
  5. GABAPENTIN [Concomitant]

REACTIONS (1)
  - MYALGIA [None]
